FAERS Safety Report 10504684 (Version 1)
Quarter: 2014Q4

REPORT INFORMATION
  Report Type: Spontaneous
  Country: US (occurrence: US)
  Receive Date: 20141008
  Receipt Date: 20141008
  Transmission Date: 20150528
  Serious: Yes (Other)
  Sender: FDA-Public Use
  Company Number: US-BAYER-2014-146594

PATIENT
  Age: 22 Year
  Sex: Female

DRUGS (1)
  1. MIRENA [Suspect]
     Active Substance: LEVONORGESTREL
     Indication: CONTRACEPTION
     Dosage: 20 MCG/24HR, CONT
     Route: 015
     Dates: start: 20050718

REACTIONS (9)
  - Procedural haemorrhage [None]
  - Pregnancy with contraceptive device [None]
  - Device dislocation [None]
  - Device misuse [None]
  - Uterine perforation [None]
  - Dysfunctional uterine bleeding [None]
  - Abdominal pain [None]
  - Drug ineffective [None]
  - Thyroid disorder [None]

NARRATIVE: CASE EVENT DATE: 2005
